FAERS Safety Report 15125698 (Version 2)
Quarter: 2018Q3

REPORT INFORMATION
  Report Type: Spontaneous
  Country: GR (occurrence: GR)
  Receive Date: 20180710
  Receipt Date: 20180726
  Transmission Date: 20181010
  Serious: Yes (Hospitalization)
  Sender: FDA-Public Use
  Company Number: PHHY2018GR039292

PATIENT
  Age: 58 Year
  Sex: Male

DRUGS (2)
  1. INTERFERON BETA?1B [Suspect]
     Active Substance: INTERFERON BETA-1B
     Indication: MULTIPLE SCLEROSIS
     Dosage: 1 ML, QOD
     Route: 058
     Dates: start: 20150313
  2. BETAFERON [Suspect]
     Active Substance: INTERFERON BETA-1B
     Indication: MULTIPLE SCLEROSIS
     Dosage: 1 ML, QOD
     Route: 042
     Dates: start: 20150313

REACTIONS (4)
  - Multiple sclerosis [Not Recovered/Not Resolved]
  - Neuropathy peripheral [Not Recovered/Not Resolved]
  - Mental disorder [Unknown]
  - Expired device used [Unknown]

NARRATIVE: CASE EVENT DATE: 20180317
